FAERS Safety Report 6839443-5 (Version None)
Quarter: 2010Q3

REPORT INFORMATION
  Report Type: 
  Country: None (occurrence: None)
  Receive Date: 20100714
  Receipt Date: 20090605
  Transmission Date: 20110219
  Serious: No
  Sender: FDA-Public Use
  Company Number: A0773292A

PATIENT
  Sex: Female

DRUGS (2)
  1. FLOVENT [Suspect]
     Indication: PRODUCT USED FOR UNKNOWN INDICATION
     Route: 055
  2. PREDNISONE [Concomitant]

REACTIONS (2)
  - ILL-DEFINED DISORDER [None]
  - PRODUCT QUALITY ISSUE [None]
